FAERS Safety Report 12672141 (Version 1)
Quarter: 2016Q3

REPORT INFORMATION
  Report Type: Spontaneous
  Country: US (occurrence: US)
  Receive Date: 20160822
  Receipt Date: 20160822
  Transmission Date: 20161109
  Serious: No
  Sender: FDA-Public Use
  Company Number: US-PFIZER INC-2016394565

PATIENT
  Age: 65 Year
  Sex: Female
  Weight: 83.1 kg

DRUGS (2)
  1. METHOTREXATE SODIUM. [Suspect]
     Active Substance: METHOTREXATE SODIUM
     Indication: RHEUMATOID ARTHRITIS
     Dosage: 15 MG, WEEKLY (2.5MG, TABLETS, BY MOUTH, 6 TABLETS ONCE A WEEK)
     Route: 048
     Dates: start: 2014, end: 201603
  2. FOLIC ACID. [Concomitant]
     Active Substance: FOLIC ACID
     Dosage: WOULD TAKE THE PRODUCT EVERYDAY WHILE ON METHOTREXATE

REACTIONS (1)
  - Liver function test increased [Not Recovered/Not Resolved]

NARRATIVE: CASE EVENT DATE: 201601
